FAERS Safety Report 11365367 (Version 2)
Quarter: 2015Q3

REPORT INFORMATION
  Report Type: Spontaneous
  Country: US (occurrence: US)
  Receive Date: 20150811
  Receipt Date: 20150813
  Transmission Date: 20151125
  Serious: No
  Sender: FDA-Public Use
  Company Number: US-GLAXOSMITHKLINE-US2015114240

PATIENT
  Age: 73 Year
  Sex: Female

DRUGS (5)
  1. COCAINE [Suspect]
     Active Substance: COCAINE
  2. ADVAIR HFA [Suspect]
     Active Substance: FLUTICASONE PROPIONATE\SALMETEROL XINAFOATE
  3. OXYGEN. [Suspect]
     Active Substance: OXYGEN
  4. FLONASE [Suspect]
     Active Substance: FLUTICASONE PROPIONATE
     Route: 045
  5. SPEED (NOS) [Suspect]
     Active Substance: UNSPECIFIED INGREDIENT

REACTIONS (2)
  - Epistaxis [Unknown]
  - Nasal dryness [Unknown]

NARRATIVE: CASE EVENT DATE: 2014
